FAERS Safety Report 10655027 (Version 1)
Quarter: 2014Q4

REPORT INFORMATION
  Report Type: Spontaneous
  Country: BR (occurrence: BR)
  Receive Date: 20141216
  Receipt Date: 20141216
  Transmission Date: 20150529
  Serious: Yes (Death)
  Sender: FDA-Public Use
  Company Number: BR-PFIZER INC-2014344991

PATIENT
  Age: 52 Year
  Sex: Female

DRUGS (3)
  1. AROMASIN [Suspect]
     Active Substance: EXEMESTANE
     Indication: BREAST CANCER
     Dosage: 25 MG, UNK
     Dates: start: 201401, end: 201411
  2. IRON [Concomitant]
     Active Substance: IRON
     Indication: MINERAL SUPPLEMENTATION
  3. COMPLEXO B /00087501/ [Concomitant]

REACTIONS (9)
  - Yellow skin [Unknown]
  - Breast cancer [Unknown]
  - Eating disorder [Unknown]
  - Feeling abnormal [Unknown]
  - Hepatomegaly [Unknown]
  - Ocular icterus [Unknown]
  - Disease progression [Unknown]
  - Vomiting [Unknown]
  - Death [Fatal]

NARRATIVE: CASE EVENT DATE: 2014
